FAERS Safety Report 25596588 (Version 3)
Quarter: 2025Q3

REPORT INFORMATION
  Report Type: Spontaneous
  Country: CA (occurrence: CA)
  Receive Date: 20250723
  Receipt Date: 20250812
  Transmission Date: 20251020
  Serious: Yes (Other)
  Sender: PFIZER
  Company Number: CA-PFIZER INC-202500147677

PATIENT
  Age: 70 Year
  Sex: Male

DRUGS (3)
  1. CIBINQO [Suspect]
     Active Substance: ABROCITINIB
     Indication: Dermatitis atopic
     Dosage: 100 MG, 1X/DAY(OR 200 MG ONCE DAILY. BUT STARTING WITH 100 MG)
     Route: 048
     Dates: start: 20231123
  2. HYDROCORTISONE [Concomitant]
     Active Substance: HYDROCORTISONE
  3. TEVA MOMETASONE [Concomitant]

REACTIONS (1)
  - Eyelid operation [Unknown]

NARRATIVE: CASE EVENT DATE: 20250101
